FAERS Safety Report 9581980 (Version 2)
Quarter: 2013Q4

REPORT INFORMATION
  Report Type: Spontaneous
  Country: US (occurrence: US)
  Receive Date: 20131002
  Receipt Date: 20131029
  Transmission Date: 20140711
  Serious: No
  Sender: FDA-Public Use
  Company Number: US-TEVA-435727USA

PATIENT
  Age: 24 Year
  Sex: Female

DRUGS (2)
  1. CLARAVIS [Suspect]
     Route: 048
     Dates: start: 20130424, end: 20130621
  2. CLARAVIS [Suspect]
     Route: 048
     Dates: start: 20130717

REACTIONS (1)
  - Blood triglycerides increased [Recovered/Resolved]
